FAERS Safety Report 12927595 (Version 1)
Quarter: 2016Q4

REPORT INFORMATION
  Report Type: Other
  Country: GB (occurrence: IR)
  Receive Date: 20161109
  Receipt Date: 20161109
  Transmission Date: 20170207
  Serious: Yes (Death)
  Sender: FDA-Public Use
  Company Number: IR-INTERNATIONAL MEDICATION SYSTEMS, LIMITED-1059393

PATIENT
  Age: 54 Year
  Sex: Male

DRUGS (10)
  1. PREDNISOLONE. [Suspect]
     Active Substance: PREDNISOLONE
  2. EPINEPHRINE. [Suspect]
     Active Substance: EPINEPHRINE
  3. AMPICILLIN [Suspect]
     Active Substance: AMPICILLIN
  4. INSULIN [Concomitant]
     Active Substance: INSULIN NOS
  5. SULFAMETHOXAZOLE AND TRIMETHOPRIM [Suspect]
     Active Substance: SULFAMETHOXAZOLE\TRIMETHOPRIM
  6. AMIKACIN SULFATE. [Suspect]
     Active Substance: AMIKACIN SULFATE
  7. AZATHIOPRINE. [Suspect]
     Active Substance: AZATHIOPRINE
  8. OMEPRAZOLE. [Suspect]
     Active Substance: OMEPRAZOLE
  9. MEROPENEM. [Suspect]
     Active Substance: MEROPENEM
  10. ACICLOVIR [Suspect]
     Active Substance: ACYCLOVIR

REACTIONS (1)
  - Death [None]
